FAERS Safety Report 5052057-5 (Version None)
Quarter: 2006Q3

REPORT INFORMATION
  Report Type: 
  Country: None (occurrence: None)
  Receive Date: 20060711
  Receipt Date: 20060626
  Transmission Date: 20061208
  Serious: Yes (Hospitalization, Other)
  Sender: FDA-Public Use
  Company Number: 224795

PATIENT
  Age: 12 Year
  Sex: Female
  Weight: 42.7 kg

DRUGS (6)
  1. XOLAIR [Suspect]
     Indication: ASTHMA
     Dosage: SUBCUTANEOUS
     Route: 058
     Dates: start: 20060315
  2. PREDNISONE [Concomitant]
  3. ADVAIR DISKUS 100/50 [Concomitant]
  4. SINGULAIR [Concomitant]
  5. FERRITIN [Concomitant]
  6. VENTOLIN (ALBUTEROL/ALBUTEROL SULFATE) [Concomitant]

REACTIONS (14)
  - ARRHYTHMIA SUPRAVENTRICULAR [None]
  - ASTHENIA [None]
  - ATRIAL CONDUCTION TIME PROLONGATION [None]
  - CARDIAC ARREST [None]
  - ELECTROCARDIOGRAM P WAVE ABNORMAL [None]
  - ELECTROLYTE IMBALANCE [None]
  - FATIGUE [None]
  - HYPERSENSITIVITY [None]
  - MALAISE [None]
  - NASAL CONGESTION [None]
  - NASOPHARYNGITIS [None]
  - SINUS TACHYCARDIA [None]
  - SOMNOLENCE [None]
  - VOMITING [None]
